FAERS Safety Report 21792333 (Version 2)
Quarter: 2022Q4

REPORT INFORMATION
  Report Type: Other
  Country: IN (occurrence: None)
  Receive Date: 20221229
  Receipt Date: 20221230
  Transmission Date: 20230112
  Serious: Yes (Hospitalization)
  Sender: FDA-Public Use
  Company Number: IN-ROCHE-3251123

PATIENT
  Sex: Male

DRUGS (1)
  1. TECENTRIQ [Suspect]
     Active Substance: ATEZOLIZUMAB
     Indication: Hepatocellular carcinoma
     Route: 042
     Dates: start: 20220921

REACTIONS (6)
  - Asthenia [Unknown]
  - Pyrexia [Unknown]
  - Somnolence [Unknown]
  - Chills [Unknown]
  - Heart rate increased [Unknown]
  - Liver disorder [Unknown]
